FAERS Safety Report 17048412 (Version 1)
Quarter: 2019Q4

REPORT INFORMATION
  Report Type: Spontaneous
  Country: SN (occurrence: SN)
  Receive Date: 20191118
  Receipt Date: 20191118
  Transmission Date: 20200122
  Serious: No
  Sender: FDA-Public Use
  Company Number: None

PATIENT
  Age: 72 Year
  Sex: Male
  Weight: 74.25 kg

DRUGS (3)
  1. LEVOTHYROXINE (LEVOTHYROXIN) [Concomitant]
     Active Substance: LEVOTHYROXINE
  2. PRAMIPEXOLE. [Concomitant]
     Active Substance: PRAMIPEXOLE
  3. ROPINIROLE. [Suspect]
     Active Substance: ROPINIROLE
     Indication: RESTLESS LEGS SYNDROME
     Dosage: ?          QUANTITY:90 TABLET(S);?
     Route: 048
     Dates: start: 20191117, end: 20191118

REACTIONS (7)
  - Face injury [None]
  - Product substitution issue [None]
  - Gait disturbance [None]
  - Incoherent [None]
  - Abnormal behaviour [None]
  - Poor quality sleep [None]
  - Amnesia [None]

NARRATIVE: CASE EVENT DATE: 20191118
